FAERS Safety Report 22066263 (Version 1)
Quarter: 2023Q1

REPORT INFORMATION
  Report Type: Spontaneous
  Country: US (occurrence: US)
  Receive Date: 20230306
  Receipt Date: 20230306
  Transmission Date: 20230418
  Serious: No
  Sender: FDA-Public Use
  Company Number: US-PFIZER INC-2019526517

PATIENT
  Age: 77 Year
  Sex: Female

DRUGS (3)
  1. INLYTA [Suspect]
     Active Substance: AXITINIB
     Dosage: 5 MG, 2X/DAY (TOOK TWO DOSES ABOUT AN HOUR OR TWO APART) (5MG TABLET. ONE TABLET BY MOUTH TWICE DAIL
     Route: 048
     Dates: start: 20190709
  2. INLYTA [Suspect]
     Active Substance: AXITINIB
     Dosage: 10 MG, UNK [TAKEN TWO THIS MORNING]
  3. ACTEMRA [Concomitant]
     Active Substance: TOCILIZUMAB
     Dosage: UNK

REACTIONS (3)
  - Cardiac disorder [Unknown]
  - Off label use [Unknown]
  - Product use issue [Unknown]

NARRATIVE: CASE EVENT DATE: 20230201
